FAERS Safety Report 6643602-4 (Version None)
Quarter: 2010Q1

REPORT INFORMATION
  Report Type: 
  Country: None (occurrence: None)
  Receive Date: 20100320
  Receipt Date: 20100310
  Transmission Date: 20100710
  Serious: Yes (Other)
  Sender: FDA-Public Use
  Company Number: FR-JNJFOC-20100103035

PATIENT
  Sex: Male

DRUGS (7)
  1. EPITOMAX [Suspect]
     Indication: ABNORMAL BEHAVIOUR
     Route: 048
     Dates: start: 20090820, end: 20091216
  2. EPITOMAX [Suspect]
     Route: 048
     Dates: start: 20090820, end: 20091216
  3. EPITOMAX [Suspect]
     Route: 048
     Dates: start: 20090820, end: 20091216
  4. EPITOMAX [Suspect]
     Route: 048
     Dates: start: 20090820, end: 20091216
  5. EPITOMAX [Suspect]
     Route: 048
     Dates: start: 20090820, end: 20091216
  6. GENOTONORM [Concomitant]
  7. SERETIDE [Concomitant]

REACTIONS (2)
  - NEUTROPENIA [None]
  - OFF LABEL USE [None]
